FAERS Safety Report 9048985 (Version 2)
Quarter: 2013Q1

REPORT INFORMATION
  Report Type: Spontaneous
  Country: US (occurrence: US)
  Receive Date: 20130204
  Receipt Date: 20130322
  Transmission Date: 20140127
  Serious: Yes (Hospitalization)
  Sender: FDA-Public Use
  Company Number: US-BAYER-2013-014311

PATIENT
  Age: 46 Year
  Sex: Female

DRUGS (4)
  1. YAZ [Suspect]
  2. LISINOPRIL [Concomitant]
     Dosage: 10 MG, UNK
  3. METFORMIN [Concomitant]
     Dosage: 500 MG, UNK
  4. ZOVIRAX [ACICLOVIR] [Concomitant]

REACTIONS (2)
  - Deep vein thrombosis [None]
  - Pulmonary embolism [None]
